FAERS Safety Report 11428689 (Version 1)
Quarter: 2015Q3

REPORT INFORMATION
  Report Type: Spontaneous
  Country: PL (occurrence: PL)
  Receive Date: 20150828
  Receipt Date: 20150828
  Transmission Date: 20151125
  Serious: Yes (Life-Threatening, Hospitalization, Disabling, Other)
  Sender: FDA-Public Use
  Company Number: PL-009507513-1508POL009132

PATIENT
  Age: 27 Year
  Sex: Female

DRUGS (1)
  1. NUVARING [Suspect]
     Active Substance: ETHINYL ESTRADIOL\ETONOGESTREL
     Indication: CONTRACEPTION
     Dosage: UNK, STRENGTH: 15 MG/24
     Route: 067
     Dates: start: 2014, end: 20140902

REACTIONS (21)
  - Cytomegalovirus test positive [Unknown]
  - Tricuspid valve incompetence [Unknown]
  - Cerebral ischaemia [Recovered/Resolved]
  - Cerebellar ischaemia [Recovered/Resolved]
  - Ischaemic stroke [Unknown]
  - High density lipoprotein increased [Unknown]
  - Fibrin D dimer increased [Unknown]
  - Depressed mood [Unknown]
  - Red blood cells urine positive [Unknown]
  - Mitral valve incompetence [Unknown]
  - Herpes simplex serology positive [Unknown]
  - C-reactive protein increased [Unknown]
  - Blood pressure increased [Unknown]
  - Alanine aminotransferase increased [Unknown]
  - Gamma-glutamyltransferase increased [Unknown]
  - Crying [Unknown]
  - Heart rate increased [Unknown]
  - Protein C increased [Unknown]
  - Bacterial test positive [Unknown]
  - Hypoacusis [Not Recovered/Not Resolved]
  - Heart rate decreased [Unknown]

NARRATIVE: CASE EVENT DATE: 201409
